FAERS Safety Report 12495366 (Version 2)
Quarter: 2016Q2

REPORT INFORMATION
  Report Type: Spontaneous
  Country: BR (occurrence: BR)
  Receive Date: 20160624
  Receipt Date: 20160627
  Transmission Date: 20160815
  Serious: Yes (Death)
  Sender: FDA-Public Use
  Company Number: BR-SA-2016SA104179

PATIENT
  Age: 5 Year
  Sex: Female

DRUGS (1)
  1. CEREZYME [Suspect]
     Active Substance: IMIGLUCERASE
     Route: 042

REACTIONS (2)
  - Respiratory failure [Fatal]
  - Lung infiltration [Unknown]

NARRATIVE: CASE EVENT DATE: 201605
